FAERS Safety Report 8303991-1 (Version None)
Quarter: 2012Q2

REPORT INFORMATION
  Report Type: 
  Country: None (occurrence: None)
  Receive Date: 20120420
  Receipt Date: 20120420
  Transmission Date: 20120825
  Serious: Yes (Other)
  Sender: FDA-Public Use
  Company Number: None

PATIENT
  Age: 59 Year
  Sex: Female
  Weight: 55.45 kg

DRUGS (1)
  1. CLONAZEPAM [Suspect]
     Indication: ANXIETY
     Dosage: 0.5 MG, 1 MG I QD, ORAL
     Route: 048
     Dates: start: 20110501, end: 20110901

REACTIONS (5)
  - MUSCLE TWITCHING [None]
  - DRUG INEFFECTIVE [None]
  - URTICARIA [None]
  - SWELLING [None]
  - DIZZINESS [None]
